FAERS Safety Report 5149295-X (Version None)
Quarter: 2006Q4

REPORT INFORMATION
  Report Type: 
  Country: None (occurrence: None)
  Receive Date: 20061113
  Receipt Date: 20061106
  Transmission Date: 20070319
  Serious: Yes (Other)
  Sender: FDA-Public Use
  Company Number: JP-JPN-A200604613

PATIENT

DRUGS (1)
  1. VALTREX [Suspect]
     Indication: HERPES ZOSTER
     Dosage: 1G THREE TIMES PER DAY
     Route: 048
     Dates: start: 20061027

REACTIONS (5)
  - DYSARTHRIA [None]
  - DYSGRAPHIA [None]
  - DYSLALIA [None]
  - GAIT DISTURBANCE [None]
  - OVERDOSE [None]
